FAERS Safety Report 21458863 (Version 1)
Quarter: 2022Q4

REPORT INFORMATION
  Report Type: Spontaneous
  Country: US (occurrence: US)
  Receive Date: 20221014
  Receipt Date: 20221014
  Transmission Date: 20230112
  Serious: No
  Sender: FDA-Public Use
  Company Number: US-NOVAST LABORATORIES INC.-2021NOV000343

PATIENT

DRUGS (1)
  1. MICROGESTIN FE 1.5/30 [Suspect]
     Active Substance: ETHINYL ESTRADIOL\NORETHINDRONE ACETATE
     Indication: Polycystic ovaries
     Dosage: UNK
     Route: 065
     Dates: start: 202111

REACTIONS (8)
  - Back pain [Unknown]
  - Vaginal haemorrhage [Unknown]
  - Intermenstrual bleeding [Unknown]
  - Premenstrual syndrome [Unknown]
  - Abdominal pain lower [Unknown]
  - Nausea [Unknown]
  - Migraine [Unknown]
  - Product use in unapproved indication [Unknown]

NARRATIVE: CASE EVENT DATE: 20211101
